FAERS Safety Report 15646529 (Version 1)
Quarter: 2018Q4

REPORT INFORMATION
  Report Type: Report from Study
  Country: None (occurrence: DE)
  Receive Date: 20181122
  Receipt Date: 20181122
  Transmission Date: 20190205
  Serious: Yes (Hospitalization)
  Sender: FDA-Public Use
  Company Number: DE-ABBVIE-18K-062-2559133-00

PATIENT
  Age: 50 Year
  Sex: Female
  Weight: 50 kg

DRUGS (2)
  1. HUMIRA [Suspect]
     Active Substance: ADALIMUMAB
     Route: 058
     Dates: start: 201810
  2. HUMIRA [Suspect]
     Active Substance: ADALIMUMAB
     Indication: PRODUCT USED FOR UNKNOWN INDICATION
     Route: 058
     Dates: start: 2012, end: 201810

REACTIONS (4)
  - Haemorrhage [Not Recovered/Not Resolved]
  - Inflammation [Not Recovered/Not Resolved]
  - Cardiac failure [Not Recovered/Not Resolved]
  - Fistula [Recovering/Resolving]

NARRATIVE: CASE EVENT DATE: 201810
